FAERS Safety Report 22249178 (Version 1)
Quarter: 2023Q2

REPORT INFORMATION
  Report Type: Spontaneous
  Country: US (occurrence: None)
  Receive Date: 20230421
  Receipt Date: 20230421
  Transmission Date: 20230722
  Serious: No
  Sender: FDA-Public Use
  Company Number: None

PATIENT
  Age: 90 Year
  Sex: Female
  Weight: 85.73 kg

DRUGS (13)
  1. IBRANCE [Suspect]
     Active Substance: PALBOCICLIB
     Indication: Breast cancer female
     Dosage: OTHER FREQUENCY : 21D ON 7D OFF;?
     Route: 048
  2. ALLOPURINOL [Concomitant]
     Active Substance: ALLOPURINOL
  3. ATORVASTATIN [Concomitant]
  4. DAPSONE [Concomitant]
  5. DOCUSATE SODIUM [Concomitant]
  6. FASLODEX [Concomitant]
     Active Substance: FULVESTRANT
  7. LASIX [Concomitant]
     Active Substance: FUROSEMIDE
  8. LATANOPROST [Concomitant]
     Active Substance: LATANOPROST
  9. MECLIZINE [Concomitant]
  10. NORCO [Concomitant]
  11. VITAMIN B12 [Concomitant]
     Active Substance: CYANOCOBALAMIN
  12. VITAMIN D3 [Concomitant]
     Active Substance: CHOLECALCIFEROL
  13. XARELTO [Concomitant]
     Active Substance: RIVAROXABAN

REACTIONS (2)
  - Therapy interrupted [None]
  - White blood cell count increased [None]
